FAERS Safety Report 7727435-3 (Version None)
Quarter: 2011Q3

REPORT INFORMATION
  Report Type: 
  Country: None (occurrence: None)
  Receive Date: 20110902
  Receipt Date: 20110823
  Transmission Date: 20111222
  Serious: Yes (Life-Threatening, Hospitalization, Disabling)
  Sender: FDA-Public Use
  Company Number: GB-ABBOTT-11P-167-0848913-00

PATIENT
  Age: 63 Year
  Sex: Female

DRUGS (17)
  1. CYCLOSPORINE [Interacting]
     Route: 048
     Dates: end: 20110426
  2. CLARITHROMYCIN [Interacting]
     Indication: PNEUMONIA
     Dosage: INDICATED FOR POSSIBLE BYT NOT PROVEN PNEUMONIA
     Route: 048
     Dates: start: 20110423, end: 20110428
  3. DOTHIEPIN HYDROCHLORIDE [Concomitant]
     Indication: GOUT
     Route: 048
  4. KLIOVANCE [Concomitant]
     Indication: PRODUCT USED FOR UNKNOWN INDICATION
     Dosage: LONG TERM
     Dates: end: 20110424
  5. CYCLOSPORINE [Interacting]
     Indication: RENAL TRANSPLANT
     Dosage: LONG TERM
     Dates: start: 20110419
  6. ATENOLOL [Concomitant]
     Indication: HYPERTENSION
     Dosage: LONG TERM
     Route: 048
  7. LEVETIRACETAM [Concomitant]
     Indication: PRODUCT USED FOR UNKNOWN INDICATION
     Dosage: LONG TERM
  8. LEVOTHYROXINE SODIUM [Concomitant]
     Indication: PRODUCT USED FOR UNKNOWN INDICATION
  9. CLARITHROMYCIN [Interacting]
     Indication: RENAL TRANSPLANT
  10. ALLOPURINOL [Concomitant]
     Indication: GOUT
     Route: 048
  11. MONONIDINE [Concomitant]
     Indication: HYPERTENSION
     Dosage: LONG TERM
     Route: 048
  12. ACETAMINOPHEN [Concomitant]
     Indication: PRODUCT USED FOR UNKNOWN INDICATION
     Dosage: LONG TERM
     Route: 048
  13. COLCHICINE [Suspect]
     Indication: GOUT
     Route: 048
     Dates: start: 20110224, end: 20110424
  14. HYOSCINE [Concomitant]
     Indication: PRODUCT USED FOR UNKNOWN INDICATION
  15. PIPERACILLIN AND TAZOBACTAM [Concomitant]
     Indication: PNEUMONIA
     Route: 042
     Dates: start: 20110424, end: 20110425
  16. AUGMENTIN '125' [Concomitant]
     Indication: PRODUCT USED FOR UNKNOWN INDICATION
     Dates: start: 20110423, end: 20110423
  17. METRONIDAZOLE [Concomitant]
     Indication: GASTROINTESTINAL INFECTION
     Route: 042
     Dates: start: 20110423, end: 20110424

REACTIONS (13)
  - DRUG INTERACTION [None]
  - NEUROPATHY PERIPHERAL [None]
  - ASTHENIA [None]
  - VOMITING [None]
  - METABOLIC ACIDOSIS [None]
  - PARAPARESIS [None]
  - BLOOD CALCIUM DECREASED [None]
  - PANCYTOPENIA [None]
  - NAUSEA [None]
  - DIARRHOEA [None]
  - BLOOD CREATINE PHOSPHOKINASE INCREASED [None]
  - GUILLAIN-BARRE SYNDROME [None]
  - MALAISE [None]
